FAERS Safety Report 10036152 (Version 8)
Quarter: 2014Q2

REPORT INFORMATION
  Report Type: Report from Study
  Country: CL (occurrence: CL)
  Receive Date: 20140325
  Receipt Date: 20140624
  Transmission Date: 20141212
  Serious: Yes (Hospitalization, Other)
  Sender: FDA-Public Use
  Company Number: CL-OTSUKA-US-2014-10440

PATIENT
  Age: 43 Year
  Sex: Female

DRUGS (2)
  1. OPC-14597 [Suspect]
     Indication: SCHIZOPHRENIA
     Dosage: 400 MG MILLIGRAM(S), DAILY DOSE
     Route: 030
     Dates: start: 20101209, end: 20140211
  2. CICLOMEX-15 [Concomitant]
     Indication: CONTRACEPTION
     Dosage: UNK, DAILY DOSE
     Dates: start: 20121005, end: 20130201

REACTIONS (1)
  - Cerebrovascular accident [Recovered/Resolved with Sequelae]
